FAERS Safety Report 24111323 (Version 1)
Quarter: 2024Q3

REPORT INFORMATION
  Report Type: Spontaneous
  Country: US (occurrence: US)
  Receive Date: 20240718
  Receipt Date: 20240718
  Transmission Date: 20241017
  Serious: No
  Sender: Unknown Manufacturer
  Company Number: US-ACELLA PHARMACEUTICALS, LLC-2024ALO00083

PATIENT
  Sex: Female

DRUGS (1)
  1. NITROFURANTOIN [Suspect]
     Active Substance: NITROFURANTOIN

REACTIONS (2)
  - Vomiting [Unknown]
  - Gluten sensitivity [Unknown]
